FAERS Safety Report 12834835 (Version 1)
Quarter: 2016Q4

REPORT INFORMATION
  Report Type: Report from Study
  Country: FR (occurrence: FR)
  Receive Date: 20161010
  Receipt Date: 20161010
  Transmission Date: 20170207
  Serious: Yes (Other)
  Sender: FDA-Public Use
  Company Number: FR-PFIZER INC-2016454645

PATIENT
  Age: 56 Year
  Sex: Female

DRUGS (1)
  1. IDARUBICIN HCL [Suspect]
     Active Substance: IDARUBICIN HYDROCHLORIDE
     Indication: GLIOBLASTOMA
     Dosage: 22 MG (12 MG/M2)
     Route: 013

REACTIONS (1)
  - Neurotoxicity [Unknown]
